FAERS Safety Report 17457100 (Version 1)
Quarter: 2020Q1

REPORT INFORMATION
  Report Type: Spontaneous
  Country: US (occurrence: US)
  Receive Date: 20200225
  Receipt Date: 20200225
  Transmission Date: 20200409
  Serious: No
  Sender: FDA-Public Use
  Company Number: US-SA-2020SA047783

PATIENT
  Age: 58 Year
  Sex: Female
  Weight: 77.1 kg

DRUGS (1)
  1. ZANTAC [Suspect]
     Active Substance: RANITIDINE HYDROCHLORIDE
     Indication: GASTROOESOPHAGEAL REFLUX DISEASE
     Dosage: 150 MG, AS NECESSARY TWICE A WEEK
     Route: 048

REACTIONS (2)
  - Vomiting [Recovered/Resolved]
  - Lactose intolerance [Recovered/Resolved]

NARRATIVE: CASE EVENT DATE: 2018
